FAERS Safety Report 9797599 (Version 1)
Quarter: 2014Q1

REPORT INFORMATION
  Report Type: Spontaneous
  Country: US (occurrence: US)
  Receive Date: 20140106
  Receipt Date: 20140106
  Transmission Date: 20141002
  Serious: Yes (Other)
  Sender: FDA-Public Use
  Company Number: US-ROCHE-1329342

PATIENT
  Sex: Female

DRUGS (1)
  1. TAMIFLU [Suspect]
     Indication: INFLUENZA
     Dosage: FOR 5 DAYS
     Route: 048

REACTIONS (3)
  - Panic attack [Recovered/Resolved]
  - Insomnia [Not Recovered/Not Resolved]
  - Feeling jittery [Recovered/Resolved]
